FAERS Safety Report 17777641 (Version 2)
Quarter: 2021Q2

REPORT INFORMATION
  Report Type: Report from Study
  Country: US (occurrence: US)
  Receive Date: 20200513
  Receipt Date: 20210427
  Transmission Date: 20210716
  Serious: Yes (Death, Other)
  Sender: FDA-Public Use
  Company Number: US-ACADIA PHARMACEUTICALS INC.-ACA-2019-014954

PATIENT
  Age: 81 Year
  Sex: Male

DRUGS (12)
  1. NUPLAZID [Suspect]
     Active Substance: PIMAVANSERIN TARTRATE
     Indication: PARKINSON^S DISEASE PSYCHOSIS
     Dosage: 34 MG, QD
     Route: 048
     Dates: start: 20191125, end: 20191129
  2. ESCITALOPRAM OXALATE. [Concomitant]
     Active Substance: ESCITALOPRAM OXALATE
  3. MIRTAZAPINE. [Concomitant]
     Active Substance: MIRTAZAPINE
  4. LASIX [Concomitant]
     Active Substance: FUROSEMIDE
  5. NEXIUM I.V. [Concomitant]
     Active Substance: ESOMEPRAZOLE SODIUM
  6. NUPLAZID [Suspect]
     Active Substance: PIMAVANSERIN TARTRATE
     Indication: HALLUCINATION
     Dosage: 34 MILLIGRAM, QD
     Route: 048
  7. NUPLAZID [Suspect]
     Active Substance: PIMAVANSERIN TARTRATE
     Indication: DELUSION
  8. NUPLAZID [Suspect]
     Active Substance: PIMAVANSERIN TARTRATE
     Indication: DELUSION
  9. XANAX [Concomitant]
     Active Substance: ALPRAZOLAM
  10. NUPLAZID [Suspect]
     Active Substance: PIMAVANSERIN TARTRATE
     Indication: PSYCHOTIC DISORDER DUE TO A GENERAL MEDICAL CONDITION
  11. LUMIGAN [Concomitant]
     Active Substance: BIMATOPROST
  12. SIMVASTATIN. [Concomitant]
     Active Substance: SIMVASTATIN

REACTIONS (3)
  - Depressed mood [Unknown]
  - Crying [Unknown]
  - Death [Fatal]

NARRATIVE: CASE EVENT DATE: 20191129
